FAERS Safety Report 8245356-7 (Version None)
Quarter: 2012Q1

REPORT INFORMATION
  Report Type: 
  Country: None (occurrence: None)
  Receive Date: 20120329
  Receipt Date: 20120321
  Transmission Date: 20120608
  Serious: Yes (Hospitalization, Other)
  Sender: FDA-Public Use
  Company Number: US-ELI_LILLY_AND_COMPANY-US201010003222

PATIENT
  Sex: Female

DRUGS (18)
  1. LORTAB [Concomitant]
     Dosage: UNK, PRN
     Route: 065
  2. GLUCOSAMINE [Concomitant]
     Dosage: UNK, UNKNOWN
     Route: 065
  3. PEPCID [Concomitant]
     Dosage: UNK, QD
     Route: 065
  4. FORTEO [Suspect]
     Indication: OSTEOPOROSIS
     Dosage: 20 UG, QD
     Route: 065
     Dates: start: 20100908
  5. FORTEO [Suspect]
     Dosage: 20 UG, QD
     Route: 065
  6. AMIODARONE HCL [Concomitant]
     Dosage: UNK, UNKNOWN
     Route: 065
  7. BUMEX [Concomitant]
     Dosage: UNK, UNKNOWN
     Route: 065
  8. POTASSIUM [Concomitant]
     Dosage: UNK, UNKNOWN
     Route: 065
  9. LANOXIN [Concomitant]
     Dosage: UNK, UNKNOWN
     Route: 065
  10. MILK OF MAGNESIA TAB [Concomitant]
     Dosage: UNK, UNKNOWN
     Route: 065
  11. B6 [Concomitant]
     Dosage: UNK, UNKNOWN
     Route: 065
  12. PRAVACHOL [Concomitant]
     Dosage: UNK, UNKNOWN
     Route: 065
  13. MULTI-VITAMIN [Concomitant]
     Dosage: UNK, UNKNOWN
     Route: 065
  14. FORTEO [Suspect]
     Dosage: 20 UG, QD
     Route: 065
  15. CALCIUM CARBONATE [Concomitant]
     Dosage: UNK, UNKNOWN
     Route: 065
  16. VITAMIN D [Concomitant]
     Dosage: UNK, UNKNOWN
     Route: 065
  17. COUMADIN [Concomitant]
     Dosage: UNK, UNKNOWN
     Route: 065
  18. NEURONTIN [Concomitant]
     Dosage: 100 MG, UNKNOWN
     Route: 065

REACTIONS (11)
  - ATRIAL FIBRILLATION [None]
  - CARDIAC FAILURE [None]
  - INJECTION SITE ERYTHEMA [None]
  - HEPATIC ENZYME ABNORMAL [None]
  - ASTHENIA [None]
  - PNEUMONIA [None]
  - ABDOMINAL PAIN [None]
  - INTERNATIONAL NORMALISED RATIO ABNORMAL [None]
  - BURNING SENSATION [None]
  - MEDICATION ERROR [None]
  - BLOOD DISORDER [None]
